FAERS Safety Report 5916881-6 (Version None)
Quarter: 2008Q3

REPORT INFORMATION
  Report Type: 
  Country: None (occurrence: None)
  Receive Date: 20080909
  Receipt Date: 20080205
  Transmission Date: 20090109
  Serious: Yes (Life-Threatening, Hospitalization)
  Sender: FDA-Public Use
  Company Number: 163-20785-08010136

PATIENT
  Age: 75 Year
  Sex: Male

DRUGS (5)
  1. THALOMID [Suspect]
     Indication: MULTIPLE MYELOMA
     Dosage: 100 MG, 2 IN 1 D, ORAL ; 50 MG, 1 IN 1 D, ORAL ; 200 MG, 2 IN 1 D, ORAL
     Route: 048
     Dates: start: 20050222, end: 20050501
  2. THALOMID [Suspect]
     Indication: MULTIPLE MYELOMA
     Dosage: 100 MG, 2 IN 1 D, ORAL ; 50 MG, 1 IN 1 D, ORAL ; 200 MG, 2 IN 1 D, ORAL
     Route: 048
     Dates: start: 20071113, end: 20071201
  3. THALOMID [Suspect]
     Indication: MULTIPLE MYELOMA
     Dosage: 100 MG, 2 IN 1 D, ORAL ; 50 MG, 1 IN 1 D, ORAL ; 200 MG, 2 IN 1 D, ORAL
     Route: 048
     Dates: start: 20071228
  4. DEXAMETHASONE TAB [Suspect]
     Indication: DRUG USE FOR UNKNOWN INDICATION
  5. CYTOXAN [Suspect]
     Indication: DRUG USE FOR UNKNOWN INDICATION
     Dosage: 500 MG
     Dates: start: 20071001

REACTIONS (2)
  - ANAEMIA [None]
  - THROMBOCYTOPENIA [None]
